FAERS Safety Report 5252462-8 (Version None)
Quarter: 2007Q1

REPORT INFORMATION
  Report Type: 
  Country: None (occurrence: None)
  Receive Date: 20070301
  Receipt Date: 20061117
  Transmission Date: 20070707
  Serious: No
  Sender: FDA-Public Use
  Company Number: US-BRISTOL-MYERS SQUIBB COMPANY-13582200

PATIENT
  Age: 53 Year
  Sex: Male
  Weight: 82 kg

DRUGS (5)
  1. ERBITUX [Suspect]
     Indication: OESOPHAGEAL CARCINOMA
     Dates: start: 20061027, end: 20061027
  2. RADIATION THERAPY [Suspect]
     Indication: OESOPHAGEAL CARCINOMA
  3. TOPROL-XL [Concomitant]
  4. PRILOSEC [Concomitant]
  5. ROXICET [Concomitant]

REACTIONS (1)
  - RASH [None]
